FAERS Safety Report 13800648 (Version 1)
Quarter: 2017Q3

REPORT INFORMATION
  Report Type: Spontaneous
  Country: US (occurrence: US)
  Receive Date: 20170727
  Receipt Date: 20170727
  Transmission Date: 20171127
  Serious: No
  Sender: FDA-Public Use
  Company Number: US-MYLANLABS-2017M1005217

PATIENT
  Sex: Female
  Weight: 73.47 kg

DRUGS (1)
  1. LEVOTHYROXINE. [Suspect]
     Active Substance: LEVOTHYROXINE
     Indication: HYPOTHYROIDISM
     Dosage: 88 ?G, QD, IN THE MORNING

REACTIONS (2)
  - Malaise [Recovered/Resolved]
  - Laboratory test abnormal [Recovered/Resolved]
